FAERS Safety Report 18801364 (Version 1)
Quarter: 2021Q1

REPORT INFORMATION
  Report Type: Spontaneous
  Country: US (occurrence: US)
  Receive Date: 20210128
  Receipt Date: 20210128
  Transmission Date: 20210419
  Serious: Yes (Other)
  Sender: FDA-Public Use
  Company Number: US-PERRIGO-21US000792

PATIENT
  Age: 46 Year
  Sex: Female
  Weight: 68.03 kg

DRUGS (3)
  1. OMEPRAZOLE. [Suspect]
     Active Substance: OMEPRAZOLE
     Indication: GASTROOESOPHAGEAL REFLUX DISEASE
     Route: 048
  2. PREVACID 24 HR [Suspect]
     Active Substance: LANSOPRAZOLE
     Dosage: 30 MG, SINGLE
     Route: 048
     Dates: start: 20210107, end: 20210107
  3. PREVACID 24 HR [Suspect]
     Active Substance: LANSOPRAZOLE
     Indication: GASTROOESOPHAGEAL REFLUX DISEASE
     Dosage: 15 MG, SINGLE
     Route: 048
     Dates: start: 20210104, end: 20210104

REACTIONS (6)
  - Burning sensation [Recovering/Resolving]
  - Dyspnoea [Recovered/Resolved]
  - Incorrect dose administered [Recovered/Resolved]
  - Abdominal pain [Recovering/Resolving]
  - Nervousness [Recovered/Resolved]
  - Chest pain [Recovering/Resolving]

NARRATIVE: CASE EVENT DATE: 20210107
